FAERS Safety Report 7628855-8 (Version None)
Quarter: 2011Q3

REPORT INFORMATION
  Report Type: 
  Country: None (occurrence: None)
  Receive Date: 20110722
  Receipt Date: 20110718
  Transmission Date: 20111222
  Serious: Yes (Life-Threatening)
  Sender: FDA-Public Use
  Company Number: NL-CELGENEUS-114-21880-11071075

PATIENT
  Sex: Male
  Weight: 75 kg

DRUGS (18)
  1. METOPROLOL TARTRATE [Concomitant]
     Dosage: 200 MILLIGRAM
     Route: 048
     Dates: start: 20110506, end: 20110709
  2. OXYCODON [Concomitant]
     Dosage: 10 MILLIGRAM
     Route: 048
     Dates: start: 20110705, end: 20110709
  3. FLUCONAZOLE [Concomitant]
     Dosage: 200 MILLIGRAM
     Route: 048
     Dates: start: 20110505, end: 20110709
  4. MEROPENEM [Concomitant]
     Dosage: 3000 MILLIGRAM
     Route: 051
     Dates: start: 20110703, end: 20110709
  5. OXYCODONE HCL [Concomitant]
     Dosage: 20 MILLIGRAM
     Route: 048
     Dates: start: 20110705, end: 20110709
  6. PENICILLIN [Concomitant]
     Dosage: 4 INTERNATIONAL UNITS MILLIONS
     Route: 051
     Dates: start: 20110615, end: 20110618
  7. CYTARABINE [Suspect]
     Dosage: 3800 MILLIGRAM
     Route: 051
     Dates: start: 20110627, end: 20110702
  8. METOCLOPRAMIDE [Concomitant]
     Dosage: 200 MILLIGRAM
     Route: 051
     Dates: start: 20110706, end: 20110709
  9. LORAZEPAM [Concomitant]
     Dosage: 1 MILLIGRAM
     Route: 048
     Dates: start: 20110707, end: 20110709
  10. GRANISETRON [Concomitant]
     Dosage: 2 MILLIGRAM
     Route: 051
     Dates: start: 20110707, end: 20110709
  11. CIPROFLOXACIN [Concomitant]
     Dosage: 1000 MILLIGRAM
     Route: 048
     Dates: start: 20110627, end: 20110703
  12. DIGOXIN [Concomitant]
     Dosage: .125 MILLIGRAM
     Route: 048
     Dates: start: 20110525, end: 20110709
  13. AMFO B [Concomitant]
     Dosage: 2000 MILLIGRAM
     Route: 048
     Dates: start: 20110706, end: 20110709
  14. REVLIMID [Suspect]
     Dosage: 10 MILLIGRAM
     Route: 048
     Dates: start: 20110627, end: 20110710
  15. VANCOMYCINE HYDROCHLORIDE [Concomitant]
     Dosage: 3000 MILLIGRAM
     Route: 051
     Dates: start: 20110708, end: 20110709
  16. ACETAMINOPHEN [Concomitant]
     Dosage: 1500 MILLIGRAM
     Route: 048
     Dates: start: 20110508, end: 20110709
  17. LOPERAMIDE [Concomitant]
     Dosage: 2 MILLIGRAM
     Route: 048
     Dates: start: 20110704, end: 20110709
  18. PENICILLIN [Concomitant]
     Dosage: 4 INTERNATIONAL UNITS MILLIONS
     Route: 051
     Dates: start: 20110702, end: 20110703

REACTIONS (1)
  - RESPIRATORY FAILURE [None]
